FAERS Safety Report 10430316 (Version 1)
Quarter: 2014Q3

REPORT INFORMATION
  Report Type: Other
  Country: GB (occurrence: GB)
  Receive Date: 20140904
  Receipt Date: 20140904
  Transmission Date: 20150326
  Serious: Yes (Hospitalization)
  Sender: FDA-Public Use
  Company Number: GB-PERRIGO-14GB008587

PATIENT
  Age: 59 Year
  Sex: Female

DRUGS (3)
  1. NITROFURANTOIN. [Suspect]
     Active Substance: NITROFURANTOIN
     Indication: URINARY TRACT INFECTION
     Dosage: 50 G, QID
     Route: 065
     Dates: start: 20110505, end: 20110510
  2. COCODAMOL [Concomitant]
     Active Substance: ACETAMINOPHEN\CODEINE PHOSPHATE
     Indication: BACK PAIN
     Dosage: AS NECESSARY
     Route: 065
  3. NAPROXEN 250MG 16028/0144 [Suspect]
     Active Substance: NAPROXEN
     Indication: BACK INJURY
     Dosage: UNK
     Route: 048
     Dates: start: 20110505, end: 20110510

REACTIONS (5)
  - Renal failure acute [Recovered/Resolved]
  - Ureteric obstruction [Unknown]
  - Retroperitoneal fibrosis [Unknown]
  - Hydronephrosis [Unknown]
  - Costovertebral angle tenderness [Unknown]

NARRATIVE: CASE EVENT DATE: 20110510
